FAERS Safety Report 7700182-X (Version None)
Quarter: 2011Q3

REPORT INFORMATION
  Report Type: 
  Country: None (occurrence: None)
  Receive Date: 20110822
  Receipt Date: 20110818
  Transmission Date: 20111222
  Serious: No
  Sender: FDA-Public Use
  Company Number: US-PFIZER INC-2011191455

PATIENT
  Sex: Male

DRUGS (1)
  1. ALAVERT [Suspect]
     Dosage: UNK
     Route: 065

REACTIONS (1)
  - BLOOD PRESSURE INCREASED [None]
